FAERS Safety Report 8163905-4 (Version None)
Quarter: 2012Q1

REPORT INFORMATION
  Report Type: 
  Country: None (occurrence: None)
  Receive Date: 20120221
  Receipt Date: 20120206
  Transmission Date: 20120608
  Serious: Yes (Hospitalization)
  Sender: FDA-Public Use
  Company Number: 2012PL000030

PATIENT
  Age: 30 Year
  Sex: Female

DRUGS (7)
  1. CORTICOSTEROIDS [Concomitant]
  2. FACTOR MONOCLON. [Concomitant]
  3. IMURAN [Suspect]
     Indication: CROHN'S DISEASE
  4. ANTIBODY [Concomitant]
  5. GANCICLOVIR [Concomitant]
  6. ANTI-TUMOR NECROSIS [Concomitant]
  7. VALGANCICLOVIR [Concomitant]

REACTIONS (5)
  - HISTIOCYTOSIS HAEMATOPHAGIC [None]
  - HYPERTRIGLYCERIDAEMIA [None]
  - COLITIS [None]
  - PERICARDITIS [None]
  - CYTOMEGALOVIRUS INFECTION [None]
